FAERS Safety Report 7490555-5 (Version None)
Quarter: 2011Q2

REPORT INFORMATION
  Report Type: 
  Country: None (occurrence: None)
  Receive Date: 20110512
  Receipt Date: 20110428
  Transmission Date: 20111010
  Serious: Yes (Other)
  Sender: FDA-Public Use
  Company Number: US-1186082

PATIENT
  Age: 8 Year
  Sex: Male

DRUGS (1)
  1. CYCLOGYL [Suspect]
     Indication: OPHTHALMOLOGICAL EXAMINATION
     Dosage: (OPHTHALMIC)
     Route: 047

REACTIONS (6)
  - DISORIENTATION [None]
  - ERYTHEMA [None]
  - VISUAL IMPAIRMENT [None]
  - ABNORMAL BEHAVIOUR [None]
  - CONFUSIONAL STATE [None]
  - COORDINATION ABNORMAL [None]
